FAERS Safety Report 10164719 (Version 3)
Quarter: 2014Q2

REPORT INFORMATION
  Report Type: Spontaneous
  Country: US (occurrence: US)
  Receive Date: 20140510
  Receipt Date: 20140528
  Transmission Date: 20141212
  Serious: No
  Sender: FDA-Public Use
  Company Number: US-BRISTOL-MYERS SQUIBB COMPANY-19502384

PATIENT
  Age: 62 Year
  Sex: Female
  Weight: 71.2 kg

DRUGS (4)
  1. BYETTA PEN DISPOSABLE [Suspect]
     Indication: TYPE 2 DIABETES MELLITUS
     Route: 058
     Dates: start: 20130907
  2. METFORMIN HCL [Suspect]
     Route: 048
  3. GLIPIZIDE [Suspect]
  4. ENALAPRIL [Concomitant]

REACTIONS (3)
  - Blood glucose increased [Unknown]
  - Decreased appetite [Unknown]
  - Drug ineffective [Unknown]
